FAERS Safety Report 22392414 (Version 1)
Quarter: 2023Q2

REPORT INFORMATION
  Report Type: Report from Study
  Country: FR (occurrence: FR)
  Receive Date: 20230601
  Receipt Date: 20230601
  Transmission Date: 20230722
  Serious: Yes (Other)
  Sender: FDA-Public Use
  Company Number: FR-VIIV HEALTHCARE LIMITED-FR2023EME015301

PATIENT

DRUGS (2)
  1. CABOTEGRAVIR [Suspect]
     Active Substance: CABOTEGRAVIR
     Indication: HIV test positive
     Dosage: 1 DF, 1 DOSE OF EACH
     Route: 030
     Dates: start: 20221124
  2. RILPIVIRINE [Suspect]
     Active Substance: RILPIVIRINE
     Indication: HIV test positive
     Dosage: 1 DF, 1 DOSE OF EACH
     Route: 030
     Dates: start: 20221124

REACTIONS (5)
  - Chest injury [Unknown]
  - Sciatica [Recovered/Resolved]
  - Fatigue [Unknown]
  - Stress [Unknown]
  - Depressed mood [Unknown]

NARRATIVE: CASE EVENT DATE: 20221125
